FAERS Safety Report 15957946 (Version 3)
Quarter: 2019Q1

REPORT INFORMATION
  Report Type: Report from Study
  Country: US (occurrence: US)
  Receive Date: 20190213
  Receipt Date: 20190328
  Transmission Date: 20190417
  Serious: Yes (Hospitalization)
  Sender: FDA-Public Use
  Company Number: US-ACTELION-A-NJ2018-184186

PATIENT
  Age: 43 Year
  Sex: Female

DRUGS (7)
  1. LASIX [Concomitant]
     Active Substance: FUROSEMIDE
     Dosage: 40 MG, QD
  2. PROZAC [Concomitant]
     Active Substance: FLUOXETINE HYDROCHLORIDE
     Dosage: 40 MG, QD
  3. OPSUMIT [Suspect]
     Active Substance: MACITENTAN
     Indication: PULMONARY ARTERIAL HYPERTENSION
     Dosage: 10 MG, QD
     Route: 048
     Dates: start: 20190204
  4. LAMICTAL [Concomitant]
     Active Substance: LAMOTRIGINE
     Dosage: 50 MG
  5. ADEMPAS [Concomitant]
     Active Substance: RIOCIGUAT
     Dosage: 1.5 MG 2 X DAILY
  6. FLONASE [Concomitant]
     Active Substance: FLUTICASONE PROPIONATE
     Dosage: UNK
     Dates: start: 20190304
  7. TRACLEER [Suspect]
     Active Substance: BOSENTAN
     Indication: PULMONARY ARTERIAL HYPERTENSION
     Dosage: 125 MG, BID
     Route: 048
     Dates: start: 20181004, end: 20190130

REACTIONS (18)
  - Dizziness [Recovering/Resolving]
  - Pain [Recovering/Resolving]
  - Paraesthesia [Unknown]
  - Diarrhoea [Recovering/Resolving]
  - Flushing [Unknown]
  - Pyrexia [Recovering/Resolving]
  - Menorrhagia [Unknown]
  - Nasal congestion [Unknown]
  - Uterine dilation and curettage [Unknown]
  - Haemorrhage [Unknown]
  - Influenza [Recovering/Resolving]
  - Product dose omission [Unknown]
  - Oral herpes [Recovered/Resolved]
  - Vomiting [Recovering/Resolving]
  - Oropharyngeal pain [Recovering/Resolving]
  - Gait disturbance [Recovering/Resolving]
  - Dyspnoea [Recovering/Resolving]
  - Epistaxis [Unknown]

NARRATIVE: CASE EVENT DATE: 201901
